FAERS Safety Report 4730877-1 (Version None)
Quarter: 2005Q3

REPORT INFORMATION
  Report Type: 
  Country: None (occurrence: None)
  Receive Date: 20050728
  Receipt Date: 20050607
  Transmission Date: 20060218
  Serious: Yes (Other)
  Sender: FDA-Public Use
  Company Number: ZICO001223

PATIENT
  Sex: Male

DRUGS (1)
  1. PRIALT [Suspect]
     Dosage: 4.8 MCG/DAY INTRATHECAL
     Route: 037
     Dates: start: 20050525, end: 20050501

REACTIONS (2)
  - APHASIA [None]
  - LOSS OF CONSCIOUSNESS [None]
